FAERS Safety Report 14175211 (Version 1)
Quarter: 2017Q4

REPORT INFORMATION
  Report Type: Report from Study
  Country: US (occurrence: US)
  Receive Date: 20171109
  Receipt Date: 20171109
  Transmission Date: 20180321
  Serious: Yes (Death, Other)
  Sender: FDA-Public Use
  Company Number: US-BAYER-2017-213950

PATIENT
  Sex: Male

DRUGS (3)
  1. PLAVIX [Interacting]
     Active Substance: CLOPIDOGREL BISULFATE
     Dosage: 600 MG, UNK
  2. ACETYLSALICYLIC ACID [Suspect]
     Active Substance: ASPIRIN
     Indication: ANTIPLATELET THERAPY
     Dosage: 325 MG, UNK
  3. TIROFIBAN [Suspect]
     Active Substance: TIROFIBAN
     Dosage: OF 0.1 MCG/KG/MIN WAS MAINTAINED FOR 2-6 HOURS AFTER FDD
     Route: 042

REACTIONS (4)
  - Drug administration error [Fatal]
  - Drug interaction [None]
  - Cerebral haemorrhage [Fatal]
  - Labelled drug-drug interaction medication error [Fatal]
